FAERS Safety Report 25052270 (Version 1)
Quarter: 2025Q1

REPORT INFORMATION
  Report Type: Spontaneous
  Country: GB (occurrence: GB)
  Receive Date: 20250307
  Receipt Date: 20250307
  Transmission Date: 20250408
  Serious: Yes (Other)
  Sender: ELI LILLY AND COMPANY
  Company Number: None

PATIENT
  Age: 34 Year
  Sex: Female
  Weight: 107 kg

DRUGS (8)
  1. MOUNJARO [Interacting]
     Active Substance: TIRZEPATIDE
     Indication: Weight control
     Route: 065
     Dates: start: 20250218
  2. ETHINYL ESTRADIOL\LEVONORGESTREL ACETATE [Interacting]
     Active Substance: ETHINYL ESTRADIOL\LEVONORGESTREL ACETATE
     Indication: Endometriosis
     Dosage: UNK UNK, DAILY
     Route: 065
     Dates: start: 20250114
  3. ETHINYL ESTRADIOL\LEVONORGESTREL ACETATE [Interacting]
     Active Substance: ETHINYL ESTRADIOL\LEVONORGESTREL ACETATE
     Indication: Hypermobility syndrome
  4. ETHINYL ESTRADIOL\LEVONORGESTREL ACETATE [Interacting]
     Active Substance: ETHINYL ESTRADIOL\LEVONORGESTREL ACETATE
     Indication: Contraception
  5. AMITRIPTYLINE [Concomitant]
     Active Substance: AMITRIPTYLINE
     Indication: Fibromyalgia
  6. OMEPRAZOLE [Concomitant]
     Active Substance: OMEPRAZOLE
     Indication: Gastric ulcer
  7. DOSULEPIN HYDROCHLORIDE [Concomitant]
     Active Substance: DOTHIEPIN HYDROCHLORIDE
     Indication: Anxiety
  8. PROMETHAZINE [Concomitant]
     Active Substance: PROMETHAZINE HYDROCHLORIDE
     Indication: Obsessive thoughts

REACTIONS (3)
  - Intermenstrual bleeding [Not Recovered/Not Resolved]
  - Hypermobility syndrome [Unknown]
  - Drug interaction [Unknown]

NARRATIVE: CASE EVENT DATE: 20250220
